FAERS Safety Report 5317490-2 (Version None)
Quarter: 2007Q2

REPORT INFORMATION
  Report Type: 
  Country: None (occurrence: None)
  Receive Date: 20070502
  Receipt Date: 20070502
  Transmission Date: 20071010
  Serious: Yes (Other)
  Sender: FDA-Public Use
  Company Number: None

PATIENT
  Age: 54 Year
  Sex: Female
  Weight: 58.9676 kg

DRUGS (1)
  1. FORTICAL [Suspect]
     Indication: OSTEOPOROSIS
     Dosage: 1 SPRAY -200 IU- IN    DAILY NASAL
     Route: 045
     Dates: start: 20061201, end: 20070301

REACTIONS (2)
  - EPISTAXIS [None]
  - NASAL DISCOMFORT [None]
